FAERS Safety Report 9877916 (Version 1)
Quarter: 2014Q1

REPORT INFORMATION
  Report Type: Spontaneous
  Country: CN (occurrence: CN)
  Receive Date: 20140206
  Receipt Date: 20140206
  Transmission Date: 20141002
  Serious: Yes (Other)
  Sender: FDA-Public Use
  Company Number: CN-BAYER-2014-015268

PATIENT
  Age: 86 Year
  Sex: Female

DRUGS (3)
  1. GADOPENTETATE DIMEGLUMINE [Suspect]
     Indication: NUCLEAR MAGNETIC RESONANCE IMAGING
     Dosage: 20 ML, UNK
     Route: 042
     Dates: start: 20130228
  2. GADOPENTETATE DIMEGLUMINE [Suspect]
     Indication: CRANIAL OPERATION
  3. GADOPENTETATE DIMEGLUMINE [Suspect]
     Indication: BRAIN NEOPLASM

REACTIONS (5)
  - Aspiration [Recovering/Resolving]
  - Vomiting [Recovering/Resolving]
  - Airway complication of anaesthesia [Recovering/Resolving]
  - Wheezing [Recovering/Resolving]
  - Tachypnoea [Recovering/Resolving]
